FAERS Safety Report 8522685-0 (Version None)
Quarter: 2012Q3

REPORT INFORMATION
  Report Type: 
  Country: None (occurrence: None)
  Receive Date: 20120719
  Receipt Date: 20120713
  Transmission Date: 20120928
  Serious: Yes (Death, Life-Threatening, Hospitalization, Disabling, Other)
  Sender: FDA-Public Use
  Company Number: US-GLAXOSMITHKLINE-A0980872A

PATIENT
  Age: 77 Year
  Sex: Female

DRUGS (3)
  1. PREDNISONE [Concomitant]
  2. VOTRIENT [Suspect]
     Indication: MALIGNANT SOFT TISSUE NEOPLASM
     Dosage: 200MG PER DAY
     Route: 048
     Dates: start: 20120514
  3. OXYCONTIN [Concomitant]

REACTIONS (1)
  - SARCOMA METASTATIC [None]
